FAERS Safety Report 7141912-8 (Version None)
Quarter: 2010Q4

REPORT INFORMATION
  Report Type: 
  Country: None (occurrence: None)
  Receive Date: 20101207
  Receipt Date: 20101123
  Transmission Date: 20110411
  Serious: Yes (Other)
  Sender: FDA-Public Use
  Company Number: AR-JNJFOC-20101108950

PATIENT
  Age: 39 Year
  Sex: Female

DRUGS (2)
  1. REMICADE [Suspect]
     Indication: POLYARTHRITIS
     Route: 042
  2. REMICADE [Suspect]
     Indication: CROHN'S DISEASE
     Route: 042

REACTIONS (7)
  - BACTERIAL TEST POSITIVE [None]
  - BLISTER [None]
  - GAIT DISTURBANCE [None]
  - ONYCHOLYSIS [None]
  - SKIN CHAPPED [None]
  - SKIN EXFOLIATION [None]
  - SWELLING [None]
